FAERS Safety Report 24203097 (Version 1)
Quarter: 2024Q3

REPORT INFORMATION
  Report Type: Report from Study
  Country: US (occurrence: US)
  Receive Date: 20240813
  Receipt Date: 20240813
  Transmission Date: 20241016
  Serious: No
  Sender: ACADIA PHARMACEUTICALS
  Company Number: US-ACADIA PHARMACEUTICALS INC.-ACA-2024-PIM-004002

PATIENT
  Sex: Male

DRUGS (7)
  1. NUPLAZID [Suspect]
     Active Substance: PIMAVANSERIN TARTRATE
     Indication: Parkinson^s disease
     Dosage: 34 MILLIGRAM, QD
     Route: 048
     Dates: start: 20211110
  2. AMITRIPTYLINE [Concomitant]
     Active Substance: AMITRIPTYLINE
     Dosage: 25 MILLIGRAM
  3. CARBIDOPA LEVODOPA [Concomitant]
     Active Substance: CARBIDOPA\LEVODOPA
     Dosage: 25-100 MG
  4. GEMTESA [Concomitant]
     Active Substance: VIBEGRON
     Dosage: 75 MILLIGRAM
  5. GOCOVRI [Concomitant]
     Active Substance: AMANTADINE
     Dosage: 68.5 MG
  6. PROPRANOLOL [Concomitant]
     Active Substance: PROPRANOLOL HYDROCHLORIDE
     Dosage: 60 MILLIGRAM
  7. RYTARY [Concomitant]
     Active Substance: CARBIDOPA\LEVODOPA
     Dosage: 95 MILLIGRAM

REACTIONS (1)
  - Abdominal discomfort [Not Recovered/Not Resolved]
